FAERS Safety Report 7210799-7 (Version None)
Quarter: 2010Q4

REPORT INFORMATION
  Report Type: 
  Country: None (occurrence: None)
  Receive Date: 20101223
  Receipt Date: 20101210
  Transmission Date: 20110411
  Serious: Yes (Hospitalization)
  Sender: FDA-Public Use
  Company Number: 2010SP064329

PATIENT
  Age: 55 Year
  Sex: Female

DRUGS (1)
  1. CEDAX [Suspect]
     Indication: PRODUCT USED FOR UNKNOWN INDICATION

REACTIONS (8)
  - BLOOD PRESSURE INCREASED [None]
  - FOREIGN TRAVEL [None]
  - HEADACHE [None]
  - INTRACARDIAC THROMBUS [None]
  - LUNG INFILTRATION [None]
  - PSEUDOMONAS TEST POSITIVE [None]
  - THROMBOCYTOPENIA [None]
  - WEGENER'S GRANULOMATOSIS [None]
